FAERS Safety Report 9289624 (Version 1)
Quarter: 2013Q2

REPORT INFORMATION
  Report Type: Spontaneous
  Country: KZ (occurrence: KZ)
  Receive Date: 20130515
  Receipt Date: 20130515
  Transmission Date: 20140414
  Serious: Yes (Hospitalization, Other)
  Sender: FDA-Public Use
  Company Number: KZ-009507513-1305KAZ008189

PATIENT
  Age: 18 Year
  Sex: Male

DRUGS (1)
  1. PEG-INTRON [Suspect]
     Indication: CHRONIC HEPATITIS C
     Dosage: 100 MKG, ONE INJECTION PER WEEK IN FRIDAY
     Dates: start: 20130425

REACTIONS (1)
  - Deafness neurosensory [Not Recovered/Not Resolved]
